FAERS Safety Report 20539932 (Version 2)
Quarter: 2022Q2

REPORT INFORMATION
  Report Type: Report from Study
  Country: BR (occurrence: BR)
  Receive Date: 20220302
  Receipt Date: 20220505
  Transmission Date: 20220720
  Serious: Yes (Other)
  Sender: FDA-Public Use
  Company Number: BR-JNJFOC-20211122582

PATIENT
  Age: 35 Year
  Sex: Female
  Weight: 102 kg

DRUGS (2)
  1. INFLIXIMAB [Suspect]
     Active Substance: INFLIXIMAB
     Indication: Rheumatoid arthritis
     Dosage: TOOK 6 INFUSIONS; LAST INFUSION WAS ON 23-AUG-2021
     Route: 042
     Dates: start: 20210125, end: 20210823
  2. REMICADE [Suspect]
     Active Substance: INFLIXIMAB
     Indication: Rheumatoid arthritis
     Dosage: TOOK 6 INFUSIONS; LAST INFUSION WAS ON 23-AUG-2021
     Route: 042
     Dates: start: 20210125, end: 20210823

REACTIONS (7)
  - Omphalitis [Unknown]
  - Rheumatoid arthritis [Unknown]
  - Dry skin [Unknown]
  - Headache [Recovered/Resolved]
  - Nausea [Recovered/Resolved]
  - Blood pressure increased [Unknown]
  - Rash [Unknown]

NARRATIVE: CASE EVENT DATE: 20210125
